FAERS Safety Report 21079043 (Version 1)
Quarter: 2022Q3

REPORT INFORMATION
  Report Type: Report from Study
  Country: ES (occurrence: ES)
  Receive Date: 20220713
  Receipt Date: 20220713
  Transmission Date: 20221026
  Serious: Yes (Other)
  Sender: FDA-Public Use
  Company Number: ES-BRISTOL-MYERS SQUIBB COMPANY-2022-053681

PATIENT
  Age: 89 Year
  Sex: Female
  Weight: 60 kg

DRUGS (5)
  1. LENALIDOMIDE [Suspect]
     Active Substance: LENALIDOMIDE
     Indication: Plasma cell myeloma
     Route: 065
  2. CALCIUM CARBONATE\CHOLECALCIFEROL [Concomitant]
     Active Substance: CALCIUM CARBONATE\CHOLECALCIFEROL
     Indication: Diabetes mellitus
     Dosage: FREQUNCY:BID, 1 CAPSULE
     Route: 048
     Dates: start: 20180806
  3. ACYCLOVIR [Concomitant]
     Active Substance: ACYCLOVIR
     Indication: Prophylaxis
     Dosage: FREQUENCY:BID
     Route: 048
     Dates: start: 20180813
  4. SULFAMETHOXAZOLE\TRIMETHOPRIM [Concomitant]
     Active Substance: SULFAMETHOXAZOLE\TRIMETHOPRIM
     Indication: Prophylaxis
     Dosage: 3 TIMES, 1 CAPSULE
     Route: 048
     Dates: start: 20180813
  5. optovie [Concomitant]
     Indication: Osteoarthritis
     Dosage: MONTHLY, 1 BLISTER
     Route: 048
     Dates: start: 20180806

REACTIONS (3)
  - Disease recurrence [Recovered/Resolved]
  - Pituitary tumour benign [Recovered/Resolved]
  - Plasmacytoma [Recovered/Resolved]

NARRATIVE: CASE EVENT DATE: 20190604
